FAERS Safety Report 20941976 (Version 1)
Quarter: 2022Q2

REPORT INFORMATION
  Report Type: Spontaneous
  Country: US (occurrence: US)
  Receive Date: 20220610
  Receipt Date: 20220610
  Transmission Date: 20220721
  Serious: No
  Sender: FDA-Public Use
  Company Number: US-TARO PHARMACEUTICALS USA INC.-2021TAR00959

PATIENT
  Age: 66 Year
  Sex: Female

DRUGS (2)
  1. IMIQUIMOD [Suspect]
     Active Substance: IMIQUIMOD
     Indication: Hyperkeratosis
     Dosage: DAILY, ONCE A DAY EVERY NIGHT ON NOSE AND CHEEK, AND A LITTLE ON LEFT EAR
     Route: 061
     Dates: start: 20210816, end: 20210824
  2. IMIQUIMOD [Suspect]
     Active Substance: IMIQUIMOD
     Indication: Precancerous condition

REACTIONS (6)
  - Wound haemorrhage [Recovering/Resolving]
  - Deformity [Recovering/Resolving]
  - Lip swelling [Recovering/Resolving]
  - Lip discolouration [Recovering/Resolving]
  - Lip scab [Recovering/Resolving]
  - Oral mucosal erythema [Recovering/Resolving]

NARRATIVE: CASE EVENT DATE: 20210823
